FAERS Safety Report 5316956-9 (Version None)
Quarter: 2007Q2

REPORT INFORMATION
  Report Type: 
  Country: None (occurrence: None)
  Receive Date: 20070501
  Receipt Date: 20070501
  Transmission Date: 20071010
  Serious: Yes (Other)
  Sender: FDA-Public Use
  Company Number: None

PATIENT
  Age: 75 Year
  Sex: Male

DRUGS (2)
  1. TEMODAR [Suspect]
     Indication: BRAIN NEOPLASM MALIGNANT
     Dosage: 100MG  QD  PO
     Route: 048
     Dates: start: 20070112, end: 20070201
  2. TEMODAR [Suspect]
     Dosage: 20MG  #3 QD  PO
     Route: 048
     Dates: start: 20070209, end: 20070301

REACTIONS (3)
  - CONTUSION [None]
  - PLATELET COUNT DECREASED [None]
  - SKIN HAEMORRHAGE [None]
